FAERS Safety Report 7752973-7 (Version None)
Quarter: 2011Q3

REPORT INFORMATION
  Report Type: 
  Country: None (occurrence: None)
  Receive Date: 20110913
  Receipt Date: 20110829
  Transmission Date: 20111222
  Serious: Yes (Hospitalization)
  Sender: FDA-Public Use
  Company Number: TCI2011A03513

PATIENT
  Age: 60 Year
  Sex: Male

DRUGS (8)
  1. URIEF (SILDODOSIN) [Concomitant]
  2. NATEGLINIDE [Concomitant]
  3. ACTOS [Suspect]
     Indication: DIABETES MELLITUS
     Dosage: 7.5 MG (7.5 MG, 1 IN 1 D), PER ORAL; 15 MG (7.5 MG, 1 IN 1 D), PER ORAL
     Route: 048
     Dates: start: 20100326, end: 20101027
  4. ACTOS [Suspect]
     Indication: DIABETES MELLITUS
     Dosage: 7.5 MG (7.5 MG, 1 IN 1 D), PER ORAL; 15 MG (7.5 MG, 1 IN 1 D), PER ORAL
     Route: 048
     Dates: start: 20100303, end: 20100304
  5. ACTOS [Suspect]
     Indication: DIABETES MELLITUS
     Dosage: 7.5 MG (7.5 MG, 1 IN 1 D), PER ORAL; 15 MG (7.5 MG, 1 IN 1 D), PER ORAL
     Route: 048
     Dates: start: 20100309, end: 20100325
  6. ACTOS [Suspect]
     Indication: DIABETES MELLITUS
     Dosage: 7.5 MG (7.5 MG, 1 IN 1 D), PER ORAL; 15 MG (7.5 MG, 1 IN 1 D), PER ORAL
     Route: 048
     Dates: start: 20101030
  7. LANSOPRAZOLE [Concomitant]
  8. BASEN OD (VOGLIBOSE) [Concomitant]

REACTIONS (4)
  - PROSTATE CANCER [None]
  - FEELING ABNORMAL [None]
  - POLLAKIURIA [None]
  - BLADDER TRANSITIONAL CELL CARCINOMA [None]
